FAERS Safety Report 12834503 (Version 1)
Quarter: 2016Q4

REPORT INFORMATION
  Report Type: Spontaneous
  Country: SE (occurrence: SE)
  Receive Date: 20161010
  Receipt Date: 20161010
  Transmission Date: 20170207
  Serious: Yes (Hospitalization)
  Sender: FDA-Public Use
  Company Number: SE-PFIZER INC-2016468204

PATIENT
  Sex: Male

DRUGS (2)
  1. ZYVOXID [Suspect]
     Active Substance: LINEZOLID
     Indication: DEVICE RELATED INFECTION
  2. METHOTREXATE. [Concomitant]
     Active Substance: METHOTREXATE
     Indication: BONE MARROW DISORDER

REACTIONS (2)
  - Thrombocytopenia [Not Recovered/Not Resolved]
  - Malaise [Not Recovered/Not Resolved]
